FAERS Safety Report 11821461 (Version 3)
Quarter: 2016Q1

REPORT INFORMATION
  Report Type: Other
  Country: None (occurrence: RU)
  Receive Date: 20151210
  Receipt Date: 20160105
  Transmission Date: 20160525
  Serious: Yes (Hospitalization, Other)
  Sender: FDA-Public Use
  Company Number: RU-MERCK KGAA-1045295

PATIENT

DRUGS (1)
  1. NOVOTHYROX [Suspect]
     Active Substance: LEVOTHYROXINE SODIUM

REACTIONS (6)
  - Lacrimation increased [None]
  - Hyperthyroidism [None]
  - Thyrotoxic cardiomyopathy [None]
  - Choking [None]
  - Hypothyroidism [None]
  - Drug dose omission [None]
